FAERS Safety Report 23324019 (Version 1)
Quarter: 2023Q4

REPORT INFORMATION
  Report Type: Report from Study
  Country: CO (occurrence: CO)
  Receive Date: 20231221
  Receipt Date: 20231221
  Transmission Date: 20240109
  Serious: Yes (Other)
  Sender: FDA-Public Use
  Company Number: CO-ABBVIE-5409665

PATIENT
  Sex: Male
  Weight: 72 kg

DRUGS (1)
  1. SKYRIZI [Suspect]
     Active Substance: RISANKIZUMAB-RZAA
     Indication: Psoriasis
     Dosage: 2 SYRINGES OF 75 MILLIGRAM EQUAL TO 150 MILLIGRAM
     Route: 058
     Dates: start: 20211104, end: 20230515

REACTIONS (1)
  - Umbilical hernia [Not Recovered/Not Resolved]
